FAERS Safety Report 5908098-6 (Version None)
Quarter: 2008Q4

REPORT INFORMATION
  Report Type: 
  Country: None (occurrence: None)
  Receive Date: 20081003
  Receipt Date: 20080924
  Transmission Date: 20090506
  Serious: Yes (Other)
  Sender: FDA-Public Use
  Company Number: US-PFIZER INC-2008081066

PATIENT
  Sex: Female
  Weight: 68 kg

DRUGS (3)
  1. LIPITOR [Suspect]
     Dates: start: 20080922, end: 20080923
  2. PREMARIN [Concomitant]
  3. ADVIL [Concomitant]

REACTIONS (10)
  - BACK PAIN [None]
  - BURNOUT SYNDROME [None]
  - EATING DISORDER [None]
  - INSOMNIA [None]
  - LIVER INJURY [None]
  - MEDICATION ERROR [None]
  - MIGRAINE [None]
  - NAUSEA [None]
  - OVERDOSE [None]
  - PAIN IN EXTREMITY [None]
